FAERS Safety Report 19211949 (Version 1)
Quarter: 2021Q2

REPORT INFORMATION
  Report Type: Spontaneous
  Country: CN (occurrence: CN)
  Receive Date: 20210504
  Receipt Date: 20210504
  Transmission Date: 20210717
  Serious: Yes (Other)
  Sender: FDA-Public Use
  Company Number: CN-009507513-2104CHN008809

PATIENT
  Age: 65 Year
  Sex: Male
  Weight: 65.5 kg

DRUGS (6)
  1. PACLITAXEL ALBUMIN [Suspect]
     Active Substance: PACLITAXEL
     Indication: LUNG NEOPLASM MALIGNANT
     Dosage: 0.4 G (ALSO REPORTED AS 400 MG) ONCE (ALSO REPORTED AS 1 TIME A DAY)
     Route: 041
     Dates: start: 20210327, end: 20210327
  2. CISPLATIN. [Suspect]
     Active Substance: CISPLATIN
     Indication: LUNG NEOPLASM MALIGNANT
     Dosage: 135 MG, ONCE (ALSO REPORTED AS 1 TIME A DAY)
     Route: 041
     Dates: start: 20210327, end: 20210327
  3. SODIUM CHLORIDE. [Concomitant]
     Active Substance: SODIUM CHLORIDE
     Dosage: 500 ML, ONCE (ALSO REPORTED AS 1 TIME A DAY)
     Route: 041
     Dates: start: 20210327, end: 20210327
  4. SODIUM CHLORIDE. [Concomitant]
     Active Substance: SODIUM CHLORIDE
     Dosage: 150 ML, ONCE (ALSO REPORTED AS 1 TIME A DAY)
     Route: 041
     Dates: start: 20210327, end: 20210327
  5. KEYTRUDA [Suspect]
     Active Substance: PEMBROLIZUMAB
     Indication: LUNG NEOPLASM MALIGNANT
     Dosage: 200MG, ONCE (ALSO REPORTED AS 1 TIME A DAY)
     Route: 041
     Dates: start: 20210326, end: 20210326
  6. SODIUM CHLORIDE. [Concomitant]
     Active Substance: SODIUM CHLORIDE
     Indication: MEDICATION DILUTION
     Dosage: 100ML, ONCE ( ALSO REPORTED AS 1 TIME A DAY)
     Route: 041
     Dates: start: 20210326, end: 20210326

REACTIONS (1)
  - Cytopenia [Recovering/Resolving]

NARRATIVE: CASE EVENT DATE: 20210407
